FAERS Safety Report 4939290-5 (Version None)
Quarter: 2006Q1

REPORT INFORMATION
  Report Type: 
  Country: None (occurrence: None)
  Receive Date: 20060310
  Receipt Date: 20030904
  Transmission Date: 20060701
  Serious: Yes (Life-Threatening, Hospitalization)
  Sender: FDA-Public Use
  Company Number: 2003AP03103

PATIENT
  Age: 28387 Day
  Sex: Male

DRUGS (10)
  1. CASODEX [Suspect]
     Indication: PROSTATE CANCER STAGE II
     Route: 048
     Dates: start: 20030817, end: 20030901
  2. ZOLADEX [Suspect]
     Indication: PROSTATE CANCER STAGE II
     Route: 058
     Dates: start: 20030825
  3. HYPEN [Suspect]
     Indication: PAIN MANAGEMENT
     Route: 048
     Dates: start: 20030815, end: 20030829
  4. DUROTEP [Suspect]
     Indication: PAIN MANAGEMENT
     Dates: start: 20030813
  5. LUVOX [Suspect]
     Indication: ANXIETY
     Dates: start: 20030823, end: 20030829
  6. PRIMPERAN TAB [Concomitant]
     Route: 048
     Dates: start: 20030823, end: 20030905
  7. BIO THREE [Concomitant]
     Route: 048
     Dates: start: 20030807, end: 20030821
  8. TANNALBIN [Concomitant]
     Route: 048
     Dates: start: 20030807, end: 20030821
  9. LAC B [Concomitant]
     Route: 048
     Dates: start: 20030807, end: 20030821
  10. VOLTAREN [Concomitant]
     Dates: start: 20030810

REACTIONS (3)
  - DISSEMINATED INTRAVASCULAR COAGULATION [None]
  - MYALGIA [None]
  - PLATELET COUNT DECREASED [None]
